FAERS Safety Report 7164415-3 (Version None)
Quarter: 2010Q4

REPORT INFORMATION
  Report Type: 
  Country: None (occurrence: None)
  Receive Date: 20101215
  Receipt Date: 20101206
  Transmission Date: 20110411
  Serious: No
  Sender: FDA-Public Use
  Company Number: GB-ELI_LILLY_AND_COMPANY-GB201010006972

PATIENT
  Sex: Male
  Weight: 88.889 kg

DRUGS (7)
  1. HUMULIN N [Suspect]
     Dosage: 24 U, DAILY (1/D)
     Route: 058
     Dates: start: 20100929
  2. PREDNISONE [Concomitant]
     Indication: ARTHRITIS
     Dosage: 18 MG, UNK
     Route: 048
  3. LISINOPRIL [Concomitant]
     Indication: HYPERTENSION
     Dosage: 20 MG, UNK
     Route: 048
  4. LERCANIDIPINE [Concomitant]
     Indication: HYPERTENSION
     Dosage: 20 MG, UNK
     Route: 048
  5. DOXAZOSIN [Concomitant]
     Indication: HYPERTENSION
     Dosage: 10 MG, UNK
     Route: 048
  6. ALENDRONIC ACID [Concomitant]
     Dosage: 70 MG, UNK
     Route: 048
  7. CITALOPRAM [Concomitant]
     Indication: ANXIETY
     Dosage: 20 MG, UNK
     Route: 048

REACTIONS (1)
  - INJECTION SITE RASH [None]
